FAERS Safety Report 16711991 (Version 1)
Quarter: 2019Q3

REPORT INFORMATION
  Report Type: Spontaneous
  Country: NL (occurrence: NL)
  Receive Date: 20190816
  Receipt Date: 20190816
  Transmission Date: 20191004
  Serious: Yes (Death)
  Sender: FDA-Public Use
  Company Number: NL-PFIZER INC-2019348732

PATIENT
  Age: 17 Year
  Sex: Male
  Weight: 51 kg

DRUGS (12)
  1. ONDANSETRON [Concomitant]
     Active Substance: ONDANSETRON
     Dosage: 6 MG, 3X/DAY AS NEEDED
  2. PREGABALIN. [Suspect]
     Active Substance: PREGABALIN
     Indication: PAIN
     Dosage: 25 MG, 2X/DAY
     Route: 050
     Dates: start: 20190514, end: 20190531
  3. PENTACARINAT [Suspect]
     Active Substance: PENTAMIDINE ISETHIONATE
     Indication: INFECTION PROPHYLAXIS
     Dosage: 200 MG, MONTHLY
     Route: 050
     Dates: start: 20190409, end: 20190530
  4. FOSAPREPITANT [Concomitant]
     Active Substance: FOSAPREPITANT
     Dosage: 80 MG, 1X/DAY
     Route: 048
  5. LORAZEPAM. [Concomitant]
     Active Substance: LORAZEPAM
     Dosage: 0.5 MG, 3X/DAY AS NEEDED
  6. VALACICLOVIR [Concomitant]
     Active Substance: VALACYCLOVIR HYDROCHLORIDE
     Dosage: 500 MG, 2X/DAY
  7. PROGRAFT [Suspect]
     Active Substance: TACROLIMUS
     Indication: GRAFT VERSUS HOST DISEASE
     Dosage: 5 MG, 2X/DAY
     Route: 050
     Dates: start: 20190420, end: 20190530
  8. PREDNISOLONE. [Concomitant]
     Active Substance: PREDNISOLONE
     Dosage: 10 MG, 3X/DAY
  9. MAGNESIUMSULFAAT [Concomitant]
     Dosage: 1000 MG, 3X/DAY
  10. RANITIDINE. [Suspect]
     Active Substance: RANITIDINE
     Indication: PROPHYLAXIS AGAINST GASTROINTESTINAL ULCER
     Dosage: 150 MG, 2X/DAY
     Route: 050
     Dates: start: 20190520, end: 20190529
  11. CIPROFLOXACIN. [Suspect]
     Active Substance: CIPROFLOXACIN
     Indication: DEVICE RELATED INFECTION
     Dosage: 400 MG, 3X/DAY
     Route: 050
     Dates: start: 20190521, end: 20190530
  12. FYTOMENADION [Concomitant]
     Dosage: 10 MG, 1X/DAY

REACTIONS (1)
  - Pancreatitis acute [Fatal]

NARRATIVE: CASE EVENT DATE: 20190529
